FAERS Safety Report 7220619-2 (Version None)
Quarter: 2011Q1

REPORT INFORMATION
  Report Type: 
  Country: None (occurrence: None)
  Receive Date: 20110111
  Receipt Date: 20110104
  Transmission Date: 20110831
  Serious: Yes (Hospitalization, Other)
  Sender: FDA-Public Use
  Company Number: US-PFIZER INC-2011001835

PATIENT
  Sex: Female

DRUGS (1)
  1. PROVERA [Suspect]
     Indication: MENORRHAGIA
     Dosage: 10 MG, UNK
     Route: 048
     Dates: start: 20101201, end: 20101214

REACTIONS (8)
  - URTICARIA [None]
  - ERYTHEMA NODOSUM [None]
  - VASCULITIS [None]
  - BLISTER [None]
  - DIZZINESS [None]
  - BREAST MASS [None]
  - OEDEMA PERIPHERAL [None]
  - SKIN DISCOLOURATION [None]
